FAERS Safety Report 22605068 (Version 1)
Quarter: 2023Q2

REPORT INFORMATION
  Report Type: Spontaneous
  Country: US (occurrence: None)
  Receive Date: 20230614
  Receipt Date: 20230614
  Transmission Date: 20230722
  Serious: No
  Sender: FDA-Public Use
  Company Number: None

PATIENT
  Sex: Male
  Weight: 77.1 kg

DRUGS (1)
  1. INLYTA [Suspect]
     Active Substance: AXITINIB
     Indication: Metastases to prostate
     Dosage: FREQUENCY : TWICE A DAY;?
     Route: 048
     Dates: start: 20220401

REACTIONS (2)
  - Laboratory test abnormal [None]
  - Therapy interrupted [None]
